FAERS Safety Report 20758782 (Version 4)
Quarter: 2022Q2

REPORT INFORMATION
  Report Type: Report from Study
  Country: US (occurrence: US)
  Receive Date: 20220427
  Receipt Date: 20220613
  Transmission Date: 20220721
  Serious: Yes (Hospitalization, Other)
  Sender: FDA-Public Use
  Company Number: US-HORIZON THERAPEUTICS-HZN-2022-002914

PATIENT

DRUGS (3)
  1. KRYSTEXXA [Suspect]
     Active Substance: PEGLOTICASE
     Indication: Gouty tophus
     Dosage: 1ST INFUSION
     Route: 042
     Dates: start: 20171116
  2. KRYSTEXXA [Suspect]
     Active Substance: PEGLOTICASE
     Dosage: UNK INFUSION
     Route: 042
     Dates: start: 20220406
  3. KRYSTEXXA [Suspect]
     Active Substance: PEGLOTICASE
     Dosage: UNK INFUSION
     Route: 042
     Dates: start: 20220504

REACTIONS (6)
  - Bradycardia [Unknown]
  - Syncope [Unknown]
  - Cerebral haemorrhage [Unknown]
  - Fall [Recovered/Resolved]
  - Haematoma [Recovered/Resolved]
  - Glomerular filtration rate abnormal [Recovering/Resolving]

NARRATIVE: CASE EVENT DATE: 20220401
